FAERS Safety Report 4977629-5 (Version None)
Quarter: 2006Q2

REPORT INFORMATION
  Report Type: 
  Country: None (occurrence: None)
  Receive Date: 20060420
  Receipt Date: 20050714
  Transmission Date: 20061013
  Serious: Yes (Life-Threatening)
  Sender: FDA-Public Use
  Company Number: US-GLAXOSMITHKLINE-A0566226A

PATIENT
  Age: 17 Year
  Sex: Male

DRUGS (3)
  1. ESKALITH [Suspect]
     Indication: DRUG USE FOR UNKNOWN INDICATION
     Dosage: 600MG TWICE PER DAY
     Route: 048
     Dates: start: 20030101
  2. RISPERDAL [Concomitant]
  3. FAMOTIDINE [Concomitant]

REACTIONS (2)
  - THYROXINE INCREASED [None]
  - TRI-IODOTHYRONINE DECREASED [None]
